FAERS Safety Report 19881971 (Version 6)
Quarter: 2021Q4

REPORT INFORMATION
  Report Type: Report from Study
  Country: US (occurrence: US)
  Receive Date: 20210925
  Receipt Date: 20211123
  Transmission Date: 20220303
  Serious: Yes (Other)
  Sender: FDA-Public Use
  Company Number: US-NOVARTISPH-NVSC2021US217772

PATIENT
  Age: 87 Year
  Sex: Male

DRUGS (1)
  1. ENTRESTO [Suspect]
     Active Substance: SACUBITRIL\VALSARTAN
     Indication: Product used for unknown indication
     Dosage: 100 MG, BID (49/51MG)
     Route: 048
     Dates: start: 202108

REACTIONS (7)
  - Circulatory collapse [Recovering/Resolving]
  - Ejection fraction decreased [Unknown]
  - Tremor [Unknown]
  - Hypersomnia [Unknown]
  - Asthenia [Recovering/Resolving]
  - Fatigue [Unknown]
  - Overdose [Unknown]

NARRATIVE: CASE EVENT DATE: 20211113
